FAERS Safety Report 7739439-5 (Version None)
Quarter: 2011Q3

REPORT INFORMATION
  Report Type: 
  Country: None (occurrence: None)
  Receive Date: 20110909
  Receipt Date: 20110831
  Transmission Date: 20111222
  Serious: Yes (Death)
  Sender: FDA-Public Use
  Company Number: RU-UCBSA-040528

PATIENT
  Age: 6 Year
  Sex: Female

DRUGS (1)
  1. KEPPRA [Suspect]
     Dates: start: 20091001

REACTIONS (1)
  - DEATH [None]
